FAERS Safety Report 20711521 (Version 1)
Quarter: 2022Q2

REPORT INFORMATION
  Report Type: Spontaneous
  Country: US (occurrence: US)
  Receive Date: 20220414
  Receipt Date: 20220414
  Transmission Date: 20220721
  Serious: No
  Sender: FDA-Public Use
  Company Number: US-DUCHESNAY-2021US000190

PATIENT

DRUGS (3)
  1. OSPHENA [Suspect]
     Active Substance: OSPEMIFENE
     Indication: Vulvovaginal dryness
     Dosage: 60 MG ONCE A DAY (IN THE MORNING)
     Route: 048
     Dates: start: 202107, end: 20211023
  2. OSPHENA [Suspect]
     Active Substance: OSPEMIFENE
     Dosage: 60 MG ONCE A DAY (IN THE AFTERNOON)
     Route: 048
     Dates: start: 20211120
  3. VITAMINS [Concomitant]
     Active Substance: VITAMINS
     Indication: Vitamin supplementation
     Dosage: UNK
     Route: 048

REACTIONS (2)
  - Lip dry [Not Recovered/Not Resolved]
  - Therapeutic response unexpected [Not Recovered/Not Resolved]

NARRATIVE: CASE EVENT DATE: 20210915
